FAERS Safety Report 8145777-7 (Version None)
Quarter: 2012Q1

REPORT INFORMATION
  Report Type: 
  Country: None (occurrence: None)
  Receive Date: 20120217
  Receipt Date: 20110317
  Transmission Date: 20120608
  Serious: No
  Sender: FDA-Public Use
  Company Number: US-ABBOTT-11P-163-0712707-00

PATIENT
  Sex: Female
  Weight: 146.64 kg

DRUGS (3)
  1. SIMCOR [Suspect]
     Indication: BLOOD CHOLESTEROL INCREASED
     Dosage: 500/20 MG
     Dates: start: 20110201, end: 20110201
  2. ASPIRIN [Concomitant]
     Indication: PROPHYLAXIS
     Dosage: 30 MINUTES BEFORE SIMCOR
     Dates: start: 20110201, end: 20110201
  3. SYNTHROID [Concomitant]
     Indication: HYPOTHYROIDISM

REACTIONS (3)
  - PRURITUS [None]
  - SKIN BURNING SENSATION [None]
  - PARAESTHESIA [None]
